FAERS Safety Report 23045632 (Version 5)
Quarter: 2024Q2

REPORT INFORMATION
  Report Type: Report from Study
  Country: US (occurrence: US)
  Receive Date: 20231009
  Receipt Date: 20240415
  Transmission Date: 20240716
  Serious: Yes (Hospitalization)
  Sender: FDA-Public Use
  Company Number: US-ABBVIE-5439917

PATIENT
  Sex: Male

DRUGS (4)
  1. SKYRIZI [Suspect]
     Active Substance: RISANKIZUMAB-RZAA
     Indication: Psoriasis
     Dosage: LAST ADMINISTRATION DATE: APR 2023
     Route: 058
     Dates: start: 20230411
  2. SKYRIZI [Suspect]
     Active Substance: RISANKIZUMAB-RZAA
     Route: 058
     Dates: start: 202304
  3. SKYRIZI [Suspect]
     Active Substance: RISANKIZUMAB-RZAA
     Route: 058
  4. IBUPROFEN [Suspect]
     Active Substance: IBUPROFEN
     Indication: Pain
     Route: 065

REACTIONS (24)
  - Gastrointestinal obstruction [Unknown]
  - Psoriasis [Recovered/Resolved]
  - Autism spectrum disorder [Unknown]
  - Otitis externa [Unknown]
  - Skin ulcer [Recovered/Resolved]
  - Gait disturbance [Unknown]
  - Pain [Unknown]
  - Intestinal polyp [Recovering/Resolving]
  - Psoriatic arthropathy [Not Recovered/Not Resolved]
  - Weight decreased [Unknown]
  - Sleep disorder [Unknown]
  - Attention deficit hyperactivity disorder [Unknown]
  - Injection site haemorrhage [Unknown]
  - Hand dermatitis [Unknown]
  - Dyspepsia [Unknown]
  - Multiple allergies [Recovering/Resolving]
  - Wound [Not Recovered/Not Resolved]
  - Illness [Unknown]
  - Crohn^s disease [Unknown]
  - Pain [Unknown]
  - Weight increased [Unknown]
  - Scar [Unknown]
  - Insomnia [Unknown]
  - Dyspnoea [Unknown]

NARRATIVE: CASE EVENT DATE: 20230101
